FAERS Safety Report 13266579 (Version 1)
Quarter: 2017Q1

REPORT INFORMATION
  Report Type: Spontaneous
  Country: US (occurrence: US)
  Receive Date: 20170223
  Receipt Date: 20170223
  Transmission Date: 20170428
  Serious: No
  Sender: FDA-Public Use
  Company Number: US-BAUSCH-BL-2016-030319

PATIENT
  Age: 69 Year
  Sex: Female
  Weight: 59.93 kg

DRUGS (2)
  1. NEOMYCIN AND POLYMYXIN B SULFATES AND HYDROCORTISONE [Suspect]
     Active Substance: HYDROCORTISONE\NEOMYCIN SULFATE\POLYMYXIN B SULFATE
     Indication: OTITIS EXTERNA
     Dosage: INTO THE LEFT EAR
     Route: 001
     Dates: start: 20161012, end: 20161017
  2. VITAMIN D [Concomitant]
     Active Substance: CHOLECALCIFEROL
     Indication: PRODUCT USED FOR UNKNOWN INDICATION

REACTIONS (3)
  - Hypoacusis [Recovered/Resolved]
  - Ear discomfort [Recovered/Resolved]
  - Ear pain [Recovering/Resolving]

NARRATIVE: CASE EVENT DATE: 20161017
